FAERS Safety Report 7535827-0 (Version None)
Quarter: 2011Q2

REPORT INFORMATION
  Report Type: 
  Country: None (occurrence: None)
  Receive Date: 20110602
  Receipt Date: 20110523
  Transmission Date: 20111010
  Serious: Yes (Death, Hospitalization)
  Sender: FDA-Public Use
  Company Number: 2009AC000087

PATIENT
  Age: 36 Year
  Sex: Male

DRUGS (26)
  1. DIGOXIN [Suspect]
     Indication: ATRIAL FIBRILLATION
     Dosage: 0.25 MG; BID; PO .25 MG;BID;PO
     Dates: start: 20040701, end: 20080301
  2. DIGOXIN [Suspect]
     Indication: ATRIAL FIBRILLATION
     Dosage: 0.25 MG; BID; PO .25 MG;BID;PO
     Dates: start: 19940101
  3. TENORMIN [Concomitant]
  4. SIMVASTATIN [Concomitant]
  5. WARFARIN SODIUM [Concomitant]
  6. ZOVIRAX [Concomitant]
  7. LOVASTATIN [Concomitant]
  8. AMIODARONE HCL [Concomitant]
  9. VICONDIN [Concomitant]
  10. ATROPINE [Concomitant]
  11. DILACOR XR [Concomitant]
  12. PREVACID [Concomitant]
  13. VOLTRAN [Concomitant]
  14. LODINE [Concomitant]
  15. ALLOPURINOL [Concomitant]
  16. PROTONIX [Concomitant]
  17. IBUPROFEN [Concomitant]
  18. EPINEPHRINE [Concomitant]
  19. INDOCIN [Concomitant]
  20. DILTIAZEM [Concomitant]
  21. ASPIRIN [Concomitant]
  22. ADENOSINE [Concomitant]
  23. KEFLEX [Concomitant]
  24. CARTIA XT [Concomitant]
  25. ASPIRIN [Concomitant]
  26. ZANTAC [Concomitant]

REACTIONS (72)
  - EMOTIONAL DISTRESS [None]
  - HYPERURICAEMIA [None]
  - SPINAL OSTEOARTHRITIS [None]
  - APATHY [None]
  - CORONARY ARTERY DISEASE [None]
  - BRAIN OEDEMA [None]
  - BRONCHITIS [None]
  - COLONIC POLYP [None]
  - TOBACCO ABUSE [None]
  - ANXIETY [None]
  - HYPERHIDROSIS [None]
  - PERIPHERAL COLDNESS [None]
  - GOUT [None]
  - MYALGIA [None]
  - CARDIOACTIVE DRUG LEVEL ABOVE THERAPEUTIC [None]
  - PULSE ABSENT [None]
  - PUPIL FIXED [None]
  - LYMPHADENOPATHY [None]
  - VISUAL IMPAIRMENT [None]
  - HEART RATE IRREGULAR [None]
  - CHEST PAIN [None]
  - NIGHT SWEATS [None]
  - OBESITY [None]
  - CYANOSIS [None]
  - SUPRAVENTRICULAR EXTRASYSTOLES [None]
  - APNOEA [None]
  - RESPIRATION ABNORMAL [None]
  - CALCINOSIS [None]
  - DYSPEPSIA [None]
  - MYOCARDIAL INFARCTION [None]
  - NERVE COMPRESSION [None]
  - BLOOD TRIGLYCERIDES INCREASED [None]
  - PULMONARY OEDEMA [None]
  - VENTRICULAR EXTRASYSTOLES [None]
  - ABDOMINAL DISTENSION [None]
  - ALCOHOL ABUSE [None]
  - BLINDNESS [None]
  - ASTHENIA [None]
  - OEDEMA [None]
  - CARDIAC ARREST [None]
  - UNEVALUABLE EVENT [None]
  - FATIGUE [None]
  - ARRHYTHMIA [None]
  - VENTRICULAR ARRHYTHMIA [None]
  - OEDEMA PERIPHERAL [None]
  - NAUSEA [None]
  - LEFT VENTRICULAR HYPERTROPHY [None]
  - HEPATIC STEATOSIS [None]
  - TOXICITY TO VARIOUS AGENTS [None]
  - NECK PAIN [None]
  - PROSTATITIS [None]
  - ECONOMIC PROBLEM [None]
  - ATRIAL FIBRILLATION [None]
  - PALPITATIONS [None]
  - BLOOD GLUCOSE INCREASED [None]
  - DEPRESSION [None]
  - MYOCARDIAL FIBROSIS [None]
  - DIVERTICULUM INTESTINAL [None]
  - HYPOTONIA [None]
  - PAIN [None]
  - FEELING COLD [None]
  - BLOOD CHOLESTEROL INCREASED [None]
  - HYPERTENSION [None]
  - ARTERIOSCLEROSIS [None]
  - CARDIOACTIVE DRUG LEVEL BELOW THERAPEUTIC [None]
  - INTERVERTEBRAL DISC PROTRUSION [None]
  - STRESS [None]
  - CARDIOMEGALY [None]
  - PULMONARY CONGESTION [None]
  - HERPES SIMPLEX [None]
  - ABSCESS LIMB [None]
  - RADICULOPATHY [None]
